FAERS Safety Report 13250838 (Version 4)
Quarter: 2017Q2

REPORT INFORMATION
  Report Type: Spontaneous
  Country: US (occurrence: US)
  Receive Date: 20170220
  Receipt Date: 20170517
  Transmission Date: 20170830
  Serious: No
  Sender: FDA-Public Use
  Company Number: US-BRISTOL-MYERS SQUIBB COMPANY-BMS-2017-012432

PATIENT
  Age: 57 Year
  Sex: Male
  Weight: 74.84 kg

DRUGS (4)
  1. AVASTIN                            /00848101/ [Concomitant]
     Active Substance: SIMVASTATIN
     Indication: PRODUCT USED FOR UNKNOWN INDICATION
     Route: 065
  2. CARBOPLATIN. [Concomitant]
     Active Substance: CARBOPLATIN
     Indication: PRODUCT USED FOR UNKNOWN INDICATION
     Route: 065
  3. OPDIVO [Suspect]
     Active Substance: NIVOLUMAB
     Indication: NON-SMALL CELL LUNG CANCER
     Dosage: 240 MG, Q2WK
     Route: 042
     Dates: start: 20170118
  4. ALIMTA [Concomitant]
     Active Substance: PEMETREXED DISODIUM
     Indication: PRODUCT USED FOR UNKNOWN INDICATION
     Route: 065

REACTIONS (12)
  - Cough [Unknown]
  - Peripheral swelling [Unknown]
  - Secretion discharge [Unknown]
  - Paraesthesia [Unknown]
  - Fatigue [Unknown]
  - Sinus disorder [Unknown]
  - Hypothyroidism [Recovered/Resolved]
  - Swelling face [Recovered/Resolved]
  - Prescribed overdose [Unknown]
  - Hypoaesthesia [Unknown]
  - Musculoskeletal pain [Unknown]
  - Pyrexia [Unknown]

NARRATIVE: CASE EVENT DATE: 20170118
